FAERS Safety Report 4758129-4 (Version None)
Quarter: 2005Q3

REPORT INFORMATION
  Report Type: 
  Country: None (occurrence: None)
  Receive Date: 20050826
  Receipt Date: 20050706
  Transmission Date: 20060218
  Serious: No
  Sender: FDA-Public Use
  Company Number: WAES 0507USA00538

PATIENT
  Age: 47 Year
  Sex: Female
  Weight: 72.5755 kg

DRUGS (15)
  1. ZETIA [Suspect]
     Indication: DYSLIPIDAEMIA
     Dosage: 10 MG/DAILY/PO; SEE IMAGE
     Route: 048
     Dates: end: 20040301
  2. ZETIA [Suspect]
     Indication: DYSLIPIDAEMIA
     Dosage: 10 MG/DAILY/PO; SEE IMAGE
     Route: 048
     Dates: start: 20040120
  3. ASACOL [Concomitant]
  4. COZAAR [Concomitant]
  5. IMDUR [Concomitant]
  6. LOPRESSOR [Concomitant]
  7. LOW-OGESTREL [Concomitant]
  8. PLAVIX [Concomitant]
  9. PRILOSEC [Concomitant]
  10. PROVENTIL [Concomitant]
  11. RHINOCORT [Concomitant]
  12. SYNTHROID [Concomitant]
  13. TING [Concomitant]
  14. ZYRTEC [Concomitant]
  15. ASPIRIN [Concomitant]

REACTIONS (2)
  - NECK PAIN [None]
  - SHOULDER PAIN [None]
